FAERS Safety Report 20923968 (Version 2)
Quarter: 2022Q2

REPORT INFORMATION
  Report Type: Report from Study
  Country: TH (occurrence: TH)
  Receive Date: 20220607
  Receipt Date: 20220610
  Transmission Date: 20220721
  Serious: Yes (Death, Life-Threatening, Hospitalization)
  Sender: FDA-Public Use
  Company Number: TH-AstraZeneca-2022A206455

PATIENT
  Age: 80 Year
  Sex: Female

DRUGS (22)
  1. TRASTUZUMAB DERUXTECAN [Suspect]
     Active Substance: TRASTUZUMAB DERUXTECAN
     Indication: Non-small cell lung cancer
     Dosage: 4.4 MG/KG
     Route: 042
     Dates: start: 20220323, end: 20220323
  2. TRASTUZUMAB DERUXTECAN [Suspect]
     Active Substance: TRASTUZUMAB DERUXTECAN
     Dosage: 3.2 MG/KG
     Route: 042
     Dates: start: 20220425, end: 20220425
  3. TRASTUZUMAB DERUXTECAN [Suspect]
     Active Substance: TRASTUZUMAB DERUXTECAN
     Dosage: 3.2 MG/KG
     Route: 042
     Dates: start: 20220524, end: 20220524
  4. DURVALUMAB [Suspect]
     Active Substance: DURVALUMAB
     Indication: Non-small cell lung cancer
     Dosage: 1120 MG
     Route: 042
     Dates: start: 20220323, end: 20220323
  5. DURVALUMAB [Suspect]
     Active Substance: DURVALUMAB
     Dosage: 1120 MG
     Route: 042
     Dates: start: 20220425, end: 20220425
  6. DURVALUMAB [Suspect]
     Active Substance: DURVALUMAB
     Dosage: 1120 MG
     Route: 042
     Dates: start: 20220524, end: 20220524
  7. CARBOPLATIN [Suspect]
     Active Substance: CARBOPLATIN
     Indication: Non-small cell lung cancer
     Dosage: UNK
     Route: 042
     Dates: start: 20220323, end: 20220323
  8. CARBOPLATIN [Suspect]
     Active Substance: CARBOPLATIN
     Dosage: UNK
     Route: 042
     Dates: start: 20220425, end: 20220425
  9. CARBOPLATIN [Suspect]
     Active Substance: CARBOPLATIN
     Dosage: UNK
     Route: 042
     Dates: start: 20220524, end: 20220524
  10. SODIUM CHLORIDE [Concomitant]
     Active Substance: SODIUM CHLORIDE
     Indication: Hyponatraemia
     Dosage: 300 MG THREE TIMES A DAY
     Route: 048
     Dates: start: 20220404, end: 20220408
  11. KCL 10% SOLUTION [Concomitant]
     Indication: Hypokalaemia
     Dosage: 60 ML TWO TIMES A DAYS
     Route: 048
     Dates: start: 20220404, end: 20220406
  12. ONDANSETRON [Concomitant]
     Active Substance: ONDANSETRON
     Indication: Aspiration
     Dosage: 8 MG TWO TIMES A DAY
     Route: 048
  13. CEFTAZIDIME [Concomitant]
     Active Substance: CEFTAZIDIME
     Indication: Febrile neutropenia
     Dosage: 1 MG
     Route: 042
     Dates: start: 20220407
  14. MORPHINE(IR) [Concomitant]
     Indication: Febrile neutropenia
     Dosage: 5 MG
     Route: 048
     Dates: start: 20220407
  15. GLYCOPHOS [Concomitant]
     Active Substance: SODIUM GLYCEROPHOSPHATE ANHYDROUS
     Indication: Febrile neutropenia
     Dosage: 20 ML
     Route: 042
     Dates: start: 20220408
  16. UNSPECIFIED INGREDIENT [Concomitant]
     Active Substance: UNSPECIFIED INGREDIENT
     Indication: Febrile neutropenia
     Dosage: 300 MCG  DAILY
     Route: 058
     Dates: start: 20220406
  17. ACETAMINOPHEN [Concomitant]
     Active Substance: ACETAMINOPHEN
     Indication: Pain
     Dosage: 500 MG AS REQUIRED
     Route: 048
     Dates: start: 20220425
  18. ENOXAPARIN [Concomitant]
     Active Substance: ENOXAPARIN
     Indication: Urinary bladder haemorrhage
     Dosage: 40 MG
     Route: 058
     Dates: start: 20220425
  19. MILK OF MAGNESIA [Concomitant]
     Active Substance: MAGNESIUM HYDROXIDE
     Indication: Constipation
     Dosage: 5 ML
     Route: 048
     Dates: start: 20220425
  20. SENOKOT [Concomitant]
     Active Substance: SENNOSIDES
     Indication: Constipation
     Dosage: 7.5  MG DAILY
     Route: 048
     Dates: start: 20220425
  21. JOULIE^S SOLUTION [Concomitant]
     Indication: Hypophosphataemia
     Dosage: 5 MG
     Route: 048
     Dates: start: 20220407
  22. ENOXAPARIN SODIUM [Concomitant]
     Active Substance: ENOXAPARIN SODIUM
     Indication: Thrombosis
     Dosage: 40 MG
     Route: 058
     Dates: start: 20220524

REACTIONS (1)
  - Febrile neutropenia [Fatal]

NARRATIVE: CASE EVENT DATE: 20220531
